FAERS Safety Report 8139083-4 (Version None)
Quarter: 2012Q1

REPORT INFORMATION
  Report Type: 
  Country: None (occurrence: None)
  Receive Date: 20120215
  Receipt Date: 20120210
  Transmission Date: 20120608
  Serious: Yes (Other)
  Sender: FDA-Public Use
  Company Number: US-PFIZER INC-2012037188

PATIENT
  Sex: Female
  Weight: 108.84 kg

DRUGS (1)
  1. LYRICA [Suspect]
     Indication: COMPLEX REGIONAL PAIN SYNDROME
     Dosage: 150 MG, 2X/DAY
     Route: 048
     Dates: start: 20100101

REACTIONS (4)
  - TRICUSPID VALVE INCOMPETENCE [None]
  - OEDEMA PERIPHERAL [None]
  - MALAISE [None]
  - ABDOMINAL DISTENSION [None]
